FAERS Safety Report 24277274 (Version 1)
Quarter: 2024Q3

REPORT INFORMATION
  Report Type: Spontaneous
  Country: US (occurrence: US)
  Receive Date: 20240903
  Receipt Date: 20240903
  Transmission Date: 20241016
  Serious: Yes (Death)
  Sender: MYLAN
  Company Number: US-MYLANLABS-2024M1080424

PATIENT
  Age: 26 Year
  Sex: Male

DRUGS (2)
  1. ETOPOSIDE [Suspect]
     Active Substance: ETOPOSIDE
     Indication: Brain sarcoma
     Dosage: 0.5 MILLIGRAM, BIWEEKLY
     Route: 037
  2. PAZOPANIB [Suspect]
     Active Substance: PAZOPANIB
     Indication: Brain sarcoma
     Dosage: UNK
     Route: 048

REACTIONS (2)
  - Drug ineffective [Fatal]
  - Disease progression [Fatal]
